FAERS Safety Report 21454076 (Version 2)
Quarter: 2022Q4

REPORT INFORMATION
  Report Type: Report from Study
  Country: US (occurrence: US)
  Receive Date: 20221013
  Receipt Date: 20221020
  Transmission Date: 20230112
  Serious: Yes (Hospitalization, Other)
  Sender: FDA-Public Use
  Company Number: US-BRISTOL-MYERS SQUIBB COMPANY-2022-117477

PATIENT
  Age: 46 Year
  Sex: Male
  Weight: 88.0 kg

DRUGS (1)
  1. REVLIMID [Suspect]
     Active Substance: LENALIDOMIDE
     Indication: Sarcoma
     Dosage: DOSE WAS REDUCED FROM 25 MG TO 10 MG.?FREQUENCY: 1 CAPSULE DAILY FOR 21 DAYS, 7 DAYS OFF. DO NOT BRE
     Route: 065
     Dates: start: 20220829

REACTIONS (5)
  - Vomiting [Unknown]
  - Diarrhoea [Unknown]
  - Hepatic function abnormal [Unknown]
  - Renal impairment [Unknown]
  - Off label use [Unknown]
